FAERS Safety Report 22398856 (Version 1)
Quarter: 2023Q2

REPORT INFORMATION
  Report Type: Spontaneous
  Country: US (occurrence: US)
  Receive Date: 20230602
  Receipt Date: 20230602
  Transmission Date: 20230721
  Serious: Yes (Hospitalization)
  Sender: FDA-Public Use
  Company Number: US-MYLANLABS-2023M1056094

PATIENT
  Age: 65 Year
  Sex: Female

DRUGS (3)
  1. LIDOCAINE [Suspect]
     Active Substance: LIDOCAINE
     Indication: Local anaesthesia
     Dosage: 5 MILLILITER, SOLUTION WAS INJECTED WITH A DISPOSABLE 25-GAUGE, 1.25-INCH BLUNT NEEDLE...
     Route: 042
  2. BUPIVACAINE [Suspect]
     Active Substance: BUPIVACAINE
     Indication: Local anaesthesia
     Dosage: 5 MILLILITER, SOLUTION WAS INJECTED WITH A DISPOSABLE 25-GAUGE, 1.25-INCH BLUNT NEEDLE...
     Route: 042
  3. HYALURONIDASE [Suspect]
     Active Substance: HYALURONIDASE
     Indication: Nerve block
     Dosage: 200 UNITS; SOLUTION WAS INJECTED WITH A DISPOSABLE 25-GAUGE, 1.25-INCH BLUNT...
     Route: 042

REACTIONS (1)
  - Purtscher retinopathy [Recovered/Resolved]
